FAERS Safety Report 9691147 (Version 1)
Quarter: 2013Q4

REPORT INFORMATION
  Report Type: Spontaneous
  Country: FR (occurrence: FR)
  Receive Date: 20131115
  Receipt Date: 20131115
  Transmission Date: 20140711
  Serious: Yes (Death, Hospitalization)
  Sender: FDA-Public Use
  Company Number: FR-GLAXOSMITHKLINE-B0941072A

PATIENT
  Age: 85 Year
  Sex: Female

DRUGS (11)
  1. ARIXTRA [Suspect]
     Indication: THROMBOPHLEBITIS
     Dosage: 7.5MG PER DAY
     Route: 058
     Dates: start: 20130917
  2. IBUPROFEN [Suspect]
     Indication: PAIN IN EXTREMITY
     Dosage: 400MG THREE TIMES PER DAY
     Route: 048
  3. SEROPLEX [Suspect]
     Indication: ANXIETY DISORDER
     Dosage: 15MG PER DAY
     Route: 048
  4. PYOSTACINE [Suspect]
     Indication: ERYSIPELAS
     Dosage: 2G PER DAY
     Route: 048
     Dates: start: 20130917
  5. XANAX [Concomitant]
  6. PARLODEL [Concomitant]
  7. VESICARE [Concomitant]
  8. NUCTALON [Concomitant]
  9. OMEPRAZOLE [Concomitant]
  10. DAFALGAN [Concomitant]
  11. MACROGOL [Concomitant]

REACTIONS (8)
  - Muscle haemorrhage [Fatal]
  - Gastrointestinal haemorrhage [Fatal]
  - Fall [Unknown]
  - Haematoma [Unknown]
  - Anaemia [Unknown]
  - Melaena [Unknown]
  - Duodenal ulcer haemorrhage [Unknown]
  - Shock haemorrhagic [Unknown]
